FAERS Safety Report 6928303-7 (Version None)
Quarter: 2010Q3

REPORT INFORMATION
  Report Type: 
  Country: None (occurrence: None)
  Receive Date: 20100806
  Receipt Date: 20100505
  Transmission Date: 20110219
  Serious: No
  Sender: FDA-Public Use
  Company Number: 2010-06340

PATIENT
  Age: 41 Year
  Sex: Male

DRUGS (1)
  1. RAPAFLO [Suspect]
     Indication: URINARY TRACT INFECTION
     Dosage: 1 CAPSULE, ORAL
     Route: 048
     Dates: start: 20100503

REACTIONS (3)
  - DIARRHOEA [None]
  - NASAL CONGESTION [None]
  - RETROGRADE EJACULATION [None]
